FAERS Safety Report 5078477-0 (Version None)
Quarter: 2006Q3

REPORT INFORMATION
  Report Type: 
  Country: None (occurrence: None)
  Receive Date: 20060720
  Receipt Date: 20060605
  Transmission Date: 20061208
  Serious: Yes (Other)
  Sender: FDA-Public Use
  Company Number: HQWYE005607JUN06

PATIENT
  Age: 69 Year
  Sex: Female
  Weight: 111.23 kg

DRUGS (7)
  1. ADVIL PM [Suspect]
     Indication: BACK PAIN
     Dosage: 1 TABLET 1X PER 1 DAY, ORAL
     Route: 048
     Dates: start: 20060604, end: 20060604
  2. INSULIN (INSULIN) [Concomitant]
  3. LISINOPRIL [Concomitant]
  4. ZOCOR [Concomitant]
  5. HYDROCHLOROTHIAZIDE [Concomitant]
  6. GLUCOSAMINE (GLUCOSAMINE) [Concomitant]
  7. ZETIA [Concomitant]

REACTIONS (1)
  - RESTLESSNESS [None]
